FAERS Safety Report 6246356-9 (Version None)
Quarter: 2009Q2

REPORT INFORMATION
  Report Type: 
  Country: None (occurrence: None)
  Receive Date: 20090626
  Receipt Date: 20090518
  Transmission Date: 20091009
  Serious: Yes (Hospitalization)
  Sender: FDA-Public Use
  Company Number: FR-PFIZER INC-2009232204

PATIENT
  Age: 44 Year

DRUGS (10)
  1. HYDROXYZINE HCL [Suspect]
     Indication: EPILEPSY
     Dosage: 200 MG, ONCE
     Route: 048
     Dates: end: 20090408
  2. HYDROXYZINE HCL [Suspect]
     Dosage: 200 MG, ONCE
     Route: 048
     Dates: start: 20090409, end: 20090409
  3. PHENOBARBITAL [Suspect]
     Indication: EPILEPSY
     Dosage: 100 MG, ONCE
     Route: 048
     Dates: end: 20090408
  4. PHENOBARBITAL [Suspect]
     Dosage: 200 MG, ONCE
     Route: 048
     Dates: start: 20090409, end: 20090409
  5. DI-HYDAN [Suspect]
     Indication: EPILEPSY
     Dosage: 350 MG, ONCE
     Route: 048
     Dates: end: 20090408
  6. DI-HYDAN [Suspect]
     Dosage: 300 MG, ONCE
     Route: 048
     Dates: start: 20090409, end: 20090409
  7. CLONAZEPAM [Suspect]
     Indication: EPILEPSY
     Dosage: 12 MG, ONCE
     Route: 048
     Dates: end: 20090408
  8. CLONAZEPAM [Suspect]
     Dosage: 8 MG, ONCE
     Route: 048
     Dates: start: 20090409, end: 20090409
  9. ZYPREXA [Suspect]
     Indication: EPILEPSY
     Dosage: 10 MG, ONCE
     Route: 048
     Dates: end: 20090408
  10. ZYPREXA [Suspect]
     Dosage: 20 MG, ONCE
     Route: 048
     Dates: start: 20090409, end: 20090409

REACTIONS (2)
  - DRUG DISPENSING ERROR [None]
  - OVERDOSE [None]
